APPROVED DRUG PRODUCT: FENOFIBRATE
Active Ingredient: FENOFIBRATE
Strength: 48MG
Dosage Form/Route: TABLET;ORAL
Application: A090715 | Product #001
Applicant: BAUSCH HEALTH US LLC
Approved: Apr 5, 2012 | RLD: No | RS: No | Type: DISCN